FAERS Safety Report 17614642 (Version 1)
Quarter: 2020Q2

REPORT INFORMATION
  Report Type: Spontaneous
  Country: US (occurrence: US)
  Receive Date: 20200402
  Receipt Date: 20200402
  Transmission Date: 20200713
  Serious: No
  Sender: FDA-Public Use
  Company Number: US-PFIZER INC-2020135593

PATIENT
  Age: 75 Year
  Sex: Male

DRUGS (2)
  1. AMLODIPINE BESILATE [Suspect]
     Active Substance: AMLODIPINE BESYLATE
     Indication: HYPERTENSION
     Dosage: 5 MG, 2X/DAY
     Route: 048
  2. CARBAMAZEPIN [Interacting]
     Active Substance: CARBAMAZEPINE
     Indication: HYPERTENSION
     Dosage: UNK

REACTIONS (2)
  - Drug interaction [Unknown]
  - Off label use [Unknown]
